FAERS Safety Report 18179815 (Version 2)
Quarter: 2020Q3

REPORT INFORMATION
  Report Type: Report from Study
  Country: MX (occurrence: MX)
  Receive Date: 20200821
  Receipt Date: 20200903
  Transmission Date: 20201103
  Serious: Yes (Other)
  Sender: FDA-Public Use
  Company Number: NVSC2020MX228606

PATIENT
  Age: 82 Year
  Sex: Male
  Weight: 70 kg

DRUGS (3)
  1. CO?DIOVAN [Suspect]
     Active Substance: HYDROCHLOROTHIAZIDE\VALSARTAN
     Indication: CARDIAC FAILURE
     Dosage: 1 DF, QD
     Route: 048
     Dates: start: 200906, end: 201910
  2. ASPIRIN. [Concomitant]
     Active Substance: ASPIRIN
     Indication: COAGULATION TIME SHORTENED
     Dosage: 1 DF, QD
     Route: 048
     Dates: start: 200906
  3. LOPRESOR [Suspect]
     Active Substance: METOPROLOL
     Indication: CARDIAC FAILURE
     Dosage: 0.5 DF, QD
     Route: 048
     Dates: start: 200906

REACTIONS (2)
  - Product use in unapproved indication [Unknown]
  - Diabetes mellitus [Not Recovered/Not Resolved]

NARRATIVE: CASE EVENT DATE: 20200608
